FAERS Safety Report 15736985 (Version 2)
Quarter: 2018Q4

REPORT INFORMATION
  Report Type: Spontaneous
  Country: RS (occurrence: RS)
  Receive Date: 20181218
  Receipt Date: 20181220
  Transmission Date: 20190205
  Serious: Yes (Death, Other)
  Sender: FDA-Public Use
  Company Number: RS-IMPAX LABORATORIES, LLC-2018-IPXL-04170

PATIENT
  Age: 77 Year
  Sex: Male

DRUGS (11)
  1. AMPICILIN KRYST. [Concomitant]
     Indication: STRONGYLOIDIASIS
     Route: 065
  2. FLUCONAZOLE. [Concomitant]
     Active Substance: FLUCONAZOLE
     Indication: STRONGYLOIDIASIS
     Dosage: UNK
     Route: 065
  3. HYDROCORTISONE. [Suspect]
     Active Substance: HYDROCORTISONE
     Indication: ADDISON^S DISEASE
     Dosage: UNK
     Route: 065
  4. RIFAMPICIN [Suspect]
     Active Substance: RIFAMPIN
     Indication: PULMONARY TUBERCULOSIS
     Dosage: UNK
     Route: 065
  5. ETHAMBUTOL [Suspect]
     Active Substance: ETHAMBUTOL HYDROCHLORIDE
     Indication: PULMONARY TUBERCULOSIS
     Dosage: UNK
     Route: 065
  6. CEFEPIME [Concomitant]
     Active Substance: CEFEPIME HYDROCHLORIDE
     Indication: STRONGYLOIDIASIS
     Dosage: UNK
     Route: 065
  7. IVERMECTIN. [Suspect]
     Active Substance: IVERMECTIN
     Indication: STRONGYLOIDIASIS
     Dosage: 200 MICROGRAM/KILOGRAM, 2 /WEEK
     Route: 058
  8. IVERMECTIN. [Suspect]
     Active Substance: IVERMECTIN
     Dosage: 13 MILLIGRAM, INTWO DIVIDED DOSE FOR 4 DAYS
     Route: 058
  9. ALBENZA [Suspect]
     Active Substance: ALBENDAZOLE
     Indication: STRONGYLOIDIASIS
     Dosage: 400 MILLIGRAM, BID
     Route: 048
  10. ISONIAZID. [Suspect]
     Active Substance: ISONIAZID
     Indication: PULMONARY TUBERCULOSIS
     Dosage: UNK
     Route: 065
  11. PYRAZINAMIDE. [Suspect]
     Active Substance: PYRAZINAMIDE
     Indication: PULMONARY TUBERCULOSIS
     Dosage: UNK
     Route: 065

REACTIONS (5)
  - Meningitis bacterial [Unknown]
  - Pulmonary tuberculosis [Fatal]
  - Transaminases increased [Fatal]
  - Coma [Fatal]
  - General physical health deterioration [Unknown]
